FAERS Safety Report 8521471-5 (Version None)
Quarter: 2012Q3

REPORT INFORMATION
  Report Type: 
  Country: None (occurrence: None)
  Receive Date: 20120719
  Receipt Date: 20120712
  Transmission Date: 20120928
  Serious: Yes (Hospitalization, Other)
  Sender: FDA-Public Use
  Company Number: US-009507513-1206USA02241

PATIENT

DRUGS (8)
  1. LANTUS [Concomitant]
     Dosage: 25 UNITS AT 8PM
     Route: 058
     Dates: start: 20111201
  2. METFORMIN HYDROCHLORIDE [Concomitant]
     Indication: TYPE 2 DIABETES MELLITUS
     Dosage: 500MG 2 TABS BIB
     Route: 048
  3. LANTUS [Concomitant]
     Indication: TYPE 2 DIABETES MELLITUS
     Dosage: 20 UNITS AT HS
     Route: 058
     Dates: start: 20111201
  4. FENOFIBRATE [Concomitant]
     Indication: HYPERLIPIDAEMIA
     Dosage: 160 MG DAILY AT HS
     Route: 048
  5. LOSARTAN POTASSIUM [Concomitant]
     Indication: HYPERTENSION
     Dosage: 50 MG DAILY
     Route: 048
  6. JANUVIA [Suspect]
     Dosage: UNK
     Route: 048
     Dates: end: 20120501
  7. RAMIPRIL [Concomitant]
     Indication: HYPERTENSION
     Dosage: 10 MG BID
     Route: 048
  8. CRESTOR [Concomitant]
     Dosage: 20 MG DAILY
     Route: 048

REACTIONS (3)
  - PANCREATITIS ACUTE [None]
  - OSTEOARTHRITIS [None]
  - METABOLIC SYNDROME [None]
